FAERS Safety Report 10216583 (Version 1)
Quarter: 2014Q2

REPORT INFORMATION
  Report Type: Spontaneous
  Country: GB (occurrence: GB)
  Receive Date: 20140604
  Receipt Date: 20140604
  Transmission Date: 20141212
  Serious: Yes (Other)
  Sender: FDA-Public Use
  Company Number: GB-MALLINCKRODT-T201402378

PATIENT
  Age: 57 Year
  Sex: Male

DRUGS (3)
  1. OFIRMEV [Suspect]
     Indication: PAIN
     Dosage: 1 GRAM TOTAL
     Route: 042
  2. PARACETAMOL [Suspect]
     Indication: PAIN
     Dosage: 1 GRAM 4/1 DAY
     Route: 048
  3. LANSOPRAZOLE [Concomitant]
     Dosage: UNK

REACTIONS (1)
  - Hyperhidrosis [Unknown]
